FAERS Safety Report 10654038 (Version 2)
Quarter: 2015Q1

REPORT INFORMATION
  Report Type: Spontaneous
  Country: US (occurrence: None)
  Receive Date: 20141212
  Receipt Date: 20150115
  Transmission Date: 20150720
  Serious: Yes (Hospitalization)
  Sender: FDA-Public Use
  Company Number: 1713747-2014-999217

PATIENT
  Age: 63 Year
  Sex: Male

DRUGS (1)
  1. PD SOLUTIONS [Suspect]
     Active Substance: CALCIUM CHLORIDE\DEXTROSE MONOHYDRATE\MAGNESIUM CHLORIDE\SODIUM CHLORIDE\SODIUM LACTATE
     Indication: PERITONEAL DIALYSIS
     Route: 033

REACTIONS (4)
  - Fall [None]
  - Loss of consciousness [None]
  - Cervical vertebral fracture [None]
  - Hypotension [None]

NARRATIVE: CASE EVENT DATE: 20141020
